FAERS Safety Report 22148944 (Version 2)
Quarter: 2023Q2

REPORT INFORMATION
  Report Type: Spontaneous
  Country: GB (occurrence: GB)
  Receive Date: 20230328
  Receipt Date: 20230407
  Transmission Date: 20230722
  Serious: No
  Sender: FDA-Public Use
  Company Number: GB-MHRA-MED-202303221146504550-LKMBF

PATIENT
  Age: 79 Year
  Sex: Female

DRUGS (1)
  1. AMBRISENTAN [Suspect]
     Active Substance: AMBRISENTAN
     Indication: Product used for unknown indication
     Dosage: 10 MG, QOD
     Route: 065

REACTIONS (1)
  - Adverse drug reaction [Recovering/Resolving]
